FAERS Safety Report 9014686 (Version 1)
Quarter: 2013Q1

REPORT INFORMATION
  Report Type: Spontaneous
  Country: FR (occurrence: FR)
  Receive Date: 20130115
  Receipt Date: 20130115
  Transmission Date: 20140127
  Serious: Yes (Hospitalization)
  Sender: FDA-Public Use
  Company Number: FR-ASTRAZENECA-2013SE01391

PATIENT
  Age: 85 Year
  Sex: Female

DRUGS (16)
  1. ATACAND [Suspect]
     Route: 048
     Dates: end: 201207
  2. AUGMENTIN [Suspect]
     Route: 065
  3. ROCEPHINE [Suspect]
     Route: 065
     Dates: start: 201206, end: 201206
  4. TAVANIC [Suspect]
     Route: 065
     Dates: start: 201206, end: 201206
  5. FORTUM [Suspect]
     Route: 048
     Dates: start: 201206, end: 201206
  6. CIFLOX [Suspect]
     Route: 048
     Dates: start: 201206, end: 201206
  7. COLYMICINE [Suspect]
     Dosage: 2 MIU PER DAY
     Route: 055
     Dates: start: 20120621
  8. ZITHROMAX [Suspect]
     Route: 065
     Dates: start: 20120621
  9. ZITHROMAX [Suspect]
     Route: 065
     Dates: start: 20120625
  10. LASILIX [Suspect]
     Route: 065
  11. ATARAX [Suspect]
     Route: 048
  12. TERBUTALINE SULFATE [Suspect]
     Route: 055
  13. BROMIRE D^IPATROPIUM [Suspect]
     Route: 055
  14. SERETIDE [Concomitant]
  15. FLECAINE [Concomitant]
  16. PREVISCAN [Concomitant]

REACTIONS (4)
  - Renal tubular necrosis [Recovered/Resolved with Sequelae]
  - Renal failure acute [Recovered/Resolved with Sequelae]
  - Hyperkalaemia [Recovered/Resolved with Sequelae]
  - Hepatitis cholestatic [Not Recovered/Not Resolved]
